FAERS Safety Report 8352693-4 (Version None)
Quarter: 2012Q2

REPORT INFORMATION
  Report Type: 
  Country: None (occurrence: None)
  Receive Date: 20120511
  Receipt Date: 20110531
  Transmission Date: 20120825
  Serious: No
  Sender: FDA-Public Use
  Company Number: US-GLAXOSMITHKLINE-A0929704A

PATIENT
  Age: 64 Year
  Sex: Female

DRUGS (6)
  1. METFORMIN HCL [Concomitant]
  2. ALLOPURINOL [Concomitant]
  3. DILTIAZEM [Suspect]
     Indication: PRODUCT USED FOR UNKNOWN INDICATION
     Route: 065
  4. DILTIAZEM [Concomitant]
  5. PROPRANOLOL HYDROCHLORIDE [Suspect]
     Indication: HYPERTENSION
     Dosage: 80MG PER DAY
     Route: 048
  6. QUINAPRIL [Concomitant]

REACTIONS (1)
  - MEDICATION RESIDUE [None]
